FAERS Safety Report 7710135-3 (Version None)
Quarter: 2011Q3

REPORT INFORMATION
  Report Type: 
  Country: None (occurrence: None)
  Receive Date: 20110825
  Receipt Date: 20110816
  Transmission Date: 20111222
  Serious: Yes (Hospitalization, Other)
  Sender: FDA-Public Use
  Company Number: US-BAYER-2011-035050

PATIENT
  Age: 34 Year
  Sex: Female
  Weight: 102.49 kg

DRUGS (5)
  1. DROSPIRENONE AND ETHINYL ESTRADIOL [Suspect]
     Indication: CONTRACEPTION
     Dosage: UNK
     Dates: start: 20090312, end: 20090429
  2. BOTOX [Concomitant]
     Indication: HYPERHIDROSIS
     Dosage: INJECTIONS
  3. FINACEA [Concomitant]
     Indication: ACNE
     Route: 061
  4. VALTREX [Concomitant]
     Indication: HERPES VIRUS INFECTION
     Dosage: 1 TABLET, DAILY
     Route: 048
  5. DROSPIRENONE AND ETHINYL ESTRADIOL [Suspect]
     Indication: ACNE

REACTIONS (1)
  - PULMONARY EMBOLISM [None]
